FAERS Safety Report 7730509-4 (Version None)
Quarter: 2011Q3

REPORT INFORMATION
  Report Type: 
  Country: None (occurrence: None)
  Receive Date: 20110906
  Receipt Date: 20110824
  Transmission Date: 20111222
  Serious: Yes (Hospitalization, Other)
  Sender: FDA-Public Use
  Company Number: PHHY2011BR76240

PATIENT
  Sex: Male
  Weight: 98 kg

DRUGS (1)
  1. VOLTAREN [Suspect]
     Indication: BONE PAIN
     Dosage: 1 TABLET EVERY 12 HOURS
     Route: 048

REACTIONS (7)
  - LIVER DISORDER [None]
  - CONFUSIONAL STATE [None]
  - THROAT IRRITATION [None]
  - UPPER RESPIRATORY TRACT INFLAMMATION [None]
  - COUGH [None]
  - SPEECH DISORDER [None]
  - UMBILICAL HERNIA [None]
